FAERS Safety Report 7598541-1 (Version None)
Quarter: 2011Q3

REPORT INFORMATION
  Report Type: 
  Country: None (occurrence: None)
  Receive Date: 20110708
  Receipt Date: 20110627
  Transmission Date: 20111222
  Serious: Yes (Hospitalization, Other)
  Sender: FDA-Public Use
  Company Number: US-ELI_LILLY_AND_COMPANY-US200910005559

PATIENT
  Sex: Female

DRUGS (7)
  1. COZAAR [Concomitant]
     Dosage: 50 MG, BID
  2. DETROL LA [Concomitant]
     Dosage: 4 MG, QD
  3. SIMVASTATIN [Concomitant]
     Dosage: 40 MG, QD
  4. NORVASC [Concomitant]
     Dosage: 2.5 MG, QD
  5. HYDROCHLOROTHIAZIDE [Concomitant]
     Dosage: 12.5 MG, QD
  6. BYETTA [Suspect]
     Indication: DIABETES MELLITUS
     Dosage: 10 UG, BID
     Route: 058
     Dates: start: 20071101, end: 20081001
  7. SYNTHROID [Concomitant]
     Dosage: 137 UG, QD

REACTIONS (3)
  - PANCREATITIS ACUTE [None]
  - CHOLECYSTITIS [None]
  - CHOLELITHIASIS [None]
